FAERS Safety Report 21938984 (Version 1)
Quarter: 2023Q1

REPORT INFORMATION
  Report Type: Report from Study
  Country: US (occurrence: US)
  Receive Date: 20230201
  Receipt Date: 20230201
  Transmission Date: 20230418
  Serious: Yes (Other)
  Sender: FDA-Public Use
  Company Number: US-EXELIXIS-CABO-22057171

PATIENT
  Age: 63 Year
  Sex: Female

DRUGS (2)
  1. CABOMETYX [Suspect]
     Active Substance: CABOZANTINIB S-MALATE
     Indication: Hepatocellular carcinoma
     Dosage: 60 MG, QD
     Route: 048
     Dates: start: 20221015, end: 20221022
  2. CABOMETYX [Suspect]
     Active Substance: CABOZANTINIB S-MALATE
     Dosage: 40 MG, QD
     Route: 048
     Dates: start: 202210

REACTIONS (8)
  - Blood pressure increased [Recovering/Resolving]
  - Pruritus [Unknown]
  - Dizziness [Unknown]
  - Decreased appetite [Unknown]
  - Weight decreased [Unknown]
  - Dry skin [Unknown]
  - Headache [Unknown]
  - Constipation [Unknown]

NARRATIVE: CASE EVENT DATE: 20221001
